FAERS Safety Report 22891546 (Version 7)
Quarter: 2024Q4

REPORT INFORMATION
  Report Type: Spontaneous
  Country: BR (occurrence: BR)
  Receive Date: 20230901
  Receipt Date: 20241003
  Transmission Date: 20250115
  Serious: Yes (Other)
  Sender: SANDOZ
  Company Number: BR-002147023-NVSC2022BR248460

PATIENT
  Sex: Female
  Weight: 63 kg

DRUGS (24)
  1. CALCIUM [Suspect]
     Active Substance: CALCIUM
     Indication: Product used for unknown indication
     Dosage: UNK
     Route: 065
  2. GLIFAGE [Suspect]
     Active Substance: METFORMIN HYDROCHLORIDE
     Indication: Diabetes mellitus
     Dosage: UNK
     Route: 065
  3. KISQALI [Suspect]
     Active Substance: RIBOCICLIB
     Dosage: UNK
     Route: 065
  4. KISQALI [Suspect]
     Active Substance: RIBOCICLIB
     Dosage: UNK
     Route: 065
     Dates: start: 20221115
  5. KISQALI [Suspect]
     Active Substance: RIBOCICLIB
     Dosage: 3 DF, QD
     Route: 065
  6. KISQALI [Suspect]
     Active Substance: RIBOCICLIB
     Dosage: UNK
     Route: 065
  7. KISQALI [Suspect]
     Active Substance: RIBOCICLIB
     Dosage: 3 DOSAGE FORM, QD (USES FOR 21 DAYS, DOES A BREAK OF 7 DAYS)
     Route: 048
     Dates: start: 202210
  8. KISQALI [Suspect]
     Active Substance: RIBOCICLIB
     Indication: Breast cancer
     Dosage: 3 DOSAGE FORM, QD (USES FOR 21 DAYS, DOES A BREAK OF 7 DAYS)
     Route: 048
     Dates: start: 202210
  9. KISQALI [Suspect]
     Active Substance: RIBOCICLIB
     Indication: Bone cancer
     Dosage: UNK
     Route: 048
  10. KISQALI [Suspect]
     Active Substance: RIBOCICLIB
     Indication: Breast cancer
     Dosage: UNK
     Route: 048
     Dates: start: 20221015
  11. KISQALI [Suspect]
     Active Substance: RIBOCICLIB
     Dosage: UNK
     Route: 048
     Dates: start: 20221015
  12. KISQALI [Suspect]
     Active Substance: RIBOCICLIB
     Dosage: UNK
     Route: 048
     Dates: start: 20221015
  13. KISQALI [Suspect]
     Active Substance: RIBOCICLIB
     Indication: Bone cancer
     Dosage: 3 DOSAGE FORM, QD (USES FOR 21 DAYS, DOES A BREAK OF 7 DAYS)
     Route: 048
     Dates: start: 202210
  14. KISQALI [Suspect]
     Active Substance: RIBOCICLIB
     Dosage: 3 DOSAGE FORM, QD (USES FOR 21 DAYS, DOES A BREAK OF 7 DAYS)
     Route: 048
     Dates: start: 202210
  15. LOSARTAN [Suspect]
     Active Substance: LOSARTAN
     Dosage: 1 DOSAGE FORM (DAILY, STARTED BEFORE KISQALI)
     Route: 048
     Dates: end: 202304
  16. LOSARTAN [Suspect]
     Active Substance: LOSARTAN
     Indication: Blood pressure abnormal
     Dosage: 2 DOSAGE FORM, QD
     Route: 048
     Dates: end: 202304
  17. LOSARTAN [Suspect]
     Active Substance: LOSARTAN
     Indication: Hypertension
     Dosage: 2 DOSAGE FORM, QD
     Route: 048
     Dates: end: 202304
  18. ONDANSETRON HYDROCHLORIDE [Suspect]
     Active Substance: ONDANSETRON HYDROCHLORIDE
     Indication: Product used for unknown indication
     Dosage: UNK
     Route: 065
  19. SIMVASTATIN [Suspect]
     Active Substance: SIMVASTATIN
     Indication: Product used for unknown indication
     Dosage: UNK
     Route: 065
  20. TRAMADOL [Suspect]
     Active Substance: TRAMADOL
     Indication: Pain
     Dosage: 1 DOSAGE FORM, PRN (ONLY USES WHEN HAS PAIN, STARTED 2 MONTHS AGO))
     Route: 048
  21. VALSARTAN [Suspect]
     Active Substance: VALSARTAN
     Indication: Hypertension
     Dosage: 1 DOSAGE FORM, QD
     Route: 048
     Dates: start: 202304
  22. VALSARTAN [Suspect]
     Active Substance: VALSARTAN
     Indication: Blood pressure abnormal
  23. BISOPROLOL FUMARATE [Concomitant]
     Active Substance: BISOPROLOL FUMARATE
     Indication: Cardiac disorder
     Dosage: 1 DOSAGE FORM
     Route: 048
     Dates: start: 202304
  24. MONOLIN R [Concomitant]
     Indication: Diabetes mellitus
     Dosage: UNK (1 TIME-26 ML-INJECTABLE, DAILY) ROUTE OF ADMIN (FREE TEXT): INJECTION NOT OTHERWISE SPECIFIED
     Route: 065
     Dates: start: 202304

REACTIONS (41)
  - Blood pressure inadequately controlled [Recovered/Resolved]
  - Metastases to bone [Unknown]
  - Diabetes mellitus [Unknown]
  - Pruritus [Recovered/Resolved]
  - Drug ineffective [Recovered/Resolved]
  - Deafness unilateral [Recovering/Resolving]
  - Gait disturbance [Recovered/Resolved]
  - Retching [Not Recovered/Not Resolved]
  - Motion sickness [Unknown]
  - Gastrointestinal disorder [Unknown]
  - Blood pressure measurement [Unknown]
  - Abdominal discomfort [Recovered/Resolved]
  - Dry eye [Unknown]
  - Vision blurred [Recovered/Resolved]
  - Decreased immune responsiveness [Not Recovered/Not Resolved]
  - Movement disorder [Not Recovered/Not Resolved]
  - Spinal pain [Recovering/Resolving]
  - Scoliosis [Recovering/Resolving]
  - Osteoarthritis [Unknown]
  - Peripheral swelling [Recovered/Resolved]
  - Hyperhidrosis [Recovered/Resolved]
  - Heart rate increased [Recovering/Resolving]
  - Palpitations [Recovered/Resolved]
  - Diarrhoea [Recovered/Resolved]
  - Nausea [Recovered/Resolved]
  - Vomiting [Recovered/Resolved]
  - Anaemia [Not Recovered/Not Resolved]
  - Migraine [Recovered/Resolved]
  - Illness [Recovered/Resolved]
  - Abdominal pain [Not Recovered/Not Resolved]
  - Vomiting [Recovered/Resolved]
  - Diarrhoea [Recovered/Resolved]
  - Vomiting [Recovered/Resolved]
  - Head discomfort [Unknown]
  - Balance disorder [Unknown]
  - Memory impairment [Unknown]
  - Vertigo [Unknown]
  - Dizziness [Recovering/Resolving]
  - Nausea [Recovered/Resolved]
  - Heart rate increased [Recovered/Resolved]
  - Product label issue [Unknown]

NARRATIVE: CASE EVENT DATE: 20220101
